FAERS Safety Report 8504475-8 (Version None)
Quarter: 2012Q3

REPORT INFORMATION
  Report Type: 
  Country: None (occurrence: None)
  Receive Date: 20120711
  Receipt Date: 20120709
  Transmission Date: 20120928
  Serious: Yes (Death, Other)
  Sender: FDA-Public Use
  Company Number: VE-PFIZER INC-2011163429

PATIENT
  Age: 81 Year
  Sex: Male

DRUGS (2)
  1. LIPITOR [Suspect]
     Indication: ARTERIAL OCCLUSIVE DISEASE
     Dosage: 40 MG ONCE DAILY
     Route: 048
     Dates: start: 20050101
  2. CORAZEM [Concomitant]
     Indication: TACHYCARDIA
     Dosage: 160 MG, UNK
     Route: 048

REACTIONS (4)
  - PROSTATE CANCER [None]
  - LUNG NEOPLASM MALIGNANT [None]
  - DIARRHOEA [None]
  - MALNUTRITION [None]
